FAERS Safety Report 4413094-4 (Version None)
Quarter: 2004Q3

REPORT INFORMATION
  Report Type: 
  Country: None (occurrence: None)
  Receive Date: 20040802
  Receipt Date: 20040722
  Transmission Date: 20050211
  Serious: Yes (Hospitalization)
  Sender: FDA-Public Use
  Company Number: FI-ROCHE-375075

PATIENT
  Age: 63 Year
  Sex: Female

DRUGS (5)
  1. CAPECITABINE [Suspect]
     Indication: BREAST CANCER
     Dosage: DAYS 1-15 IN A 3 WEEK CYCLE.  ACTUAL DOSE GIVEN = 1000 MG
     Route: 048
     Dates: start: 20040511, end: 20040707
  2. DOCETAXEL [Suspect]
     Indication: BREAST CANCER
     Route: 042
     Dates: start: 20040511
  3. CYCLOPHOSPHAMIDE [Suspect]
     Indication: BREAST CANCER
     Route: 042
  4. EPIRUBICIN [Suspect]
     Indication: BREAST CANCER
     Route: 042
  5. FLUOROURACIL [Concomitant]

REACTIONS (4)
  - CHEST PAIN [None]
  - DYSPNOEA [None]
  - OESOPHAGITIS [None]
  - STOMATITIS [None]
